FAERS Safety Report 7793341-1 (Version None)
Quarter: 2011Q4

REPORT INFORMATION
  Report Type: 
  Country: None (occurrence: None)
  Receive Date: 20111003
  Receipt Date: 20110923
  Transmission Date: 20120403
  Serious: Yes (Other)
  Sender: FDA-Public Use
  Company Number: US-SANOFI-AVENTIS-2011SA062653

PATIENT
  Sex: Female

DRUGS (2)
  1. APIDRA [Suspect]
     Indication: TYPE 2 DIABETES MELLITUS
     Dosage: PER SLIDING SCALE AT MEALTIMES
     Route: 058
  2. LANTUS [Suspect]
     Indication: TYPE 2 DIABETES MELLITUS
     Dosage: DOSE:140 UNIT(S)
     Route: 058

REACTIONS (6)
  - BLOOD GLUCOSE INCREASED [None]
  - INJECTION SITE NODULE [None]
  - DRUG INEFFECTIVE [None]
  - THROMBOSIS [None]
  - INJECTION SITE HAEMATOMA [None]
  - INJECTION SITE REACTION [None]
